FAERS Safety Report 9321382 (Version 2)
Quarter: 2013Q3

REPORT INFORMATION
  Report Type: Spontaneous
  Country: DK (occurrence: DE)
  Receive Date: 20130531
  Receipt Date: 20130801
  Transmission Date: 20140515
  Serious: Yes (Other)
  Sender: FDA-Public Use
  Company Number: DE-FRI-1000045520

PATIENT
  Sex: Male

DRUGS (1)
  1. CITALOPRAM [Suspect]
     Dosage: 20 MG
     Route: 048

REACTIONS (2)
  - Suicidal ideation [Recovering/Resolving]
  - Feeling abnormal [Recovering/Resolving]
